FAERS Safety Report 16378704 (Version 2)
Quarter: 2019Q2

REPORT INFORMATION
  Report Type: Spontaneous
  Country: CH (occurrence: CH)
  Receive Date: 20190531
  Receipt Date: 20190605
  Transmission Date: 20190711
  Serious: Yes (Hospitalization, Other)
  Sender: FDA-Public Use
  Company Number: CH-MYLANLABS-2019M1051221

PATIENT
  Age: 80 Year
  Sex: Male
  Weight: 68.55 kg

DRUGS (4)
  1. NOVALGIN (METAMIZOLE SODIUM) [Interacting]
     Active Substance: METAMIZOLE SODIUM
     Indication: DENTAL OPERATION
     Dosage: 100 MILLIGRAM, QID (4 DROPS)
     Route: 048
     Dates: start: 20190321, end: 20190408
  2. BRUFEN [Suspect]
     Active Substance: IBUPROFEN
     Indication: DENTAL OPERATION
     Dosage: 600 MILLIGRAM, BID
     Route: 048
     Dates: start: 20190321, end: 20190408
  3. CO-AMOXI [Interacting]
     Active Substance: AMOXICILLIN\CLAVULANATE POTASSIUM
     Indication: DENTAL OPERATION
     Dosage: 1 GRAM, BID
     Route: 048
     Dates: start: 20190321, end: 20190405
  4. METHOTREXATE. [Suspect]
     Active Substance: METHOTREXATE
     Indication: RHEUMATOID ARTHRITIS
     Dosage: 20 MILLIGRAM, QD
     Route: 048
     Dates: start: 2018, end: 20190408

REACTIONS (2)
  - Drug interaction [Unknown]
  - Pancytopenia [Recovered/Resolved]

NARRATIVE: CASE EVENT DATE: 20190408
